FAERS Safety Report 9642264 (Version 1)
Quarter: 2013Q4

REPORT INFORMATION
  Report Type: Spontaneous
  Country: US (occurrence: US)
  Receive Date: 20131024
  Receipt Date: 20131024
  Transmission Date: 20140711
  Serious: No
  Sender: FDA-Public Use
  Company Number: US-009507513-1309USA012602

PATIENT
  Age: 57 Year
  Sex: Male

DRUGS (4)
  1. PROPECIA [Suspect]
     Indication: ALOPECIA
     Dosage: 1 MG, QD
     Route: 048
     Dates: start: 1999
  2. CLOZAPINE [Concomitant]
     Dosage: UNKNOWN
  3. HALDOL [Concomitant]
     Dosage: UNK
  4. EFFEXOR [Concomitant]
     Dosage: UNKNOWN

REACTIONS (2)
  - Sperm concentration decreased [Unknown]
  - Semen volume decreased [Unknown]
